FAERS Safety Report 8193947-4 (Version None)
Quarter: 2012Q1

REPORT INFORMATION
  Report Type: 
  Country: None (occurrence: None)
  Receive Date: 20120308
  Receipt Date: 20120228
  Transmission Date: 20120608
  Serious: Yes (Hospitalization)
  Sender: FDA-Public Use
  Company Number: DE-JNJFOC-20111009778

PATIENT
  Sex: Female

DRUGS (9)
  1. FLUPIRTINE MALEATE [Concomitant]
     Route: 048
  2. AMITRIPTYLINE HCL [Concomitant]
     Route: 065
  3. METOPROLOL SUCCINATE [Concomitant]
     Route: 048
  4. REPAGLINIDE [Concomitant]
     Route: 048
  5. AMLODIPINE [Concomitant]
     Route: 048
  6. TAPENTADOL HYDROCHLORIDE [Suspect]
     Indication: BACK PAIN
     Route: 065
     Dates: start: 20110802, end: 20111013
  7. METFORMIN HCL [Concomitant]
     Route: 048
  8. TAPENTADOL HYDROCHLORIDE [Suspect]
     Indication: NEURALGIA
     Route: 065
     Dates: start: 20110802, end: 20111013
  9. RAMIPRIL [Concomitant]
     Route: 048

REACTIONS (6)
  - SPINAL FRACTURE [None]
  - VERTIGO [None]
  - LEUKOCYTOSIS [None]
  - FALL [None]
  - HYPERGLYCAEMIA [None]
  - HYPERTENSIVE CRISIS [None]
